FAERS Safety Report 20821278 (Version 3)
Quarter: 2022Q2

REPORT INFORMATION
  Report Type: Spontaneous
  Country: JP (occurrence: JP)
  Receive Date: 20220512
  Receipt Date: 20220608
  Transmission Date: 20220721
  Serious: Yes (Death)
  Sender: FDA-Public Use
  Company Number: JP-JNJFOC-20220523112

PATIENT
  Age: 9 Decade
  Sex: Female

DRUGS (1)
  1. RISPERDAL [Suspect]
     Active Substance: RISPERIDONE
     Indication: Product used for unknown indication
     Dosage: AT BEDTIME
     Route: 048

REACTIONS (3)
  - Myocardial ischaemia [Fatal]
  - Inappropriate schedule of product administration [Unknown]
  - Off label use [Unknown]
